FAERS Safety Report 15766828 (Version 2)
Quarter: 2019Q1

REPORT INFORMATION
  Report Type: Spontaneous
  Country: EG (occurrence: EG)
  Receive Date: 20181227
  Receipt Date: 20190103
  Transmission Date: 20190417
  Serious: Yes (Hospitalization, Other)
  Sender: FDA-Public Use
  Company Number: EG-NOVOPROD-639578

PATIENT
  Age: 42 Year
  Sex: Female
  Weight: 110 kg

DRUGS (6)
  1. MIXTARD HUMAN 70/30 [Suspect]
     Active Substance: INSULIN HUMAN
     Dosage: 40 IU, QD (25IU IN MORNING 15IU AT NIGHT)
     Route: 058
     Dates: start: 20181212
  2. AUGMENTIN [Concomitant]
     Active Substance: AMOXICILLIN\CLAVULANATE POTASSIUM
     Indication: ANTIBIOTIC THERAPY
     Dosage: TWICE DAILY
     Route: 048
     Dates: start: 20181201
  3. MAREVAN [Concomitant]
     Active Substance: WARFARIN SODIUM
     Indication: ANTICOAGULANT THERAPY
     Dosage: ONCE DAILY
     Route: 048
  4. GLUCOPHAGE [Concomitant]
     Active Substance: METFORMIN HYDROCHLORIDE
     Indication: HYPERGLYCAEMIA
     Dosage: ONCE AFTER LUNCH
     Route: 048
  5. MIXTARD HUMAN 70/30 [Suspect]
     Active Substance: INSULIN HUMAN
     Indication: TYPE 2 DIABETES MELLITUS
     Dosage: 30 IU, QD(20IU IN MORNING 10IU AT NIGHT)
     Route: 058
     Dates: start: 201807
  6. DALACIN C                          /00166001/ [Concomitant]
     Active Substance: CLINDAMYCIN PHOSPHATE
     Indication: ANTIBIOTIC THERAPY
     Dosage: TWIC DAILY
     Route: 048
     Dates: start: 20181201

REACTIONS (3)
  - Abdominal hernia repair [Not Recovered/Not Resolved]
  - Impaired healing [Recovered/Resolved]
  - Blood glucose increased [Recovered/Resolved]

NARRATIVE: CASE EVENT DATE: 20181201
